FAERS Safety Report 4692371-6 (Version None)
Quarter: 2005Q2

REPORT INFORMATION
  Report Type: 
  Country: None (occurrence: None)
  Receive Date: 20050616
  Receipt Date: 20050527
  Transmission Date: 20051028
  Serious: Yes (Life-Threatening, Hospitalization, Other)
  Sender: FDA-Public Use
  Company Number: JP_050306131

PATIENT
  Age: 43 Year
  Sex: Male
  Weight: 60 kg

DRUGS (8)
  1. PROZAC [Suspect]
     Indication: DEPRESSIVE SYMPTOM
     Dosage: UNK
     Route: 065
  2. ASCOMARNA (TRIAZOLAM) [Concomitant]
  3. ESTAZOLAM [Concomitant]
  4. ATARAX [Concomitant]
  5. VEGETAMIN [Concomitant]
  6. HIRNAMIN (LEVOMEPROMAZINE) [Concomitant]
  7. AMOXAPINE [Concomitant]
  8. LIMAS (LITHIUM CARBONATE) [Concomitant]

REACTIONS (8)
  - CYSTITIS [None]
  - DRUG INTERACTION [None]
  - HEPATITIS ALCOHOLIC [None]
  - INFLAMMATION [None]
  - PANCREATIC PSEUDOCYST [None]
  - PANCREATITIS ACUTE [None]
  - PULMONARY FIBROSIS [None]
  - RENAL DISORDER [None]
